FAERS Safety Report 19274148 (Version 1)
Quarter: 2021Q2

REPORT INFORMATION
  Report Type: Spontaneous
  Country: US (occurrence: US)
  Receive Date: 20210519
  Receipt Date: 20210519
  Transmission Date: 20210717
  Serious: Yes (Death, Hospitalization)
  Sender: FDA-Public Use
  Company Number: None

PATIENT
  Age: 69 Year
  Sex: Female
  Weight: 73.03 kg

DRUGS (3)
  1. COENZYME Q10 [Concomitant]
     Active Substance: DIETARY SUPPLEMENT\UBIDECARENONE
  2. METHOTREXATE. [Suspect]
     Active Substance: METHOTREXATE
     Indication: RHEUMATOID ARTHRITIS
     Route: 048
     Dates: start: 20200722, end: 20200824
  3. ROSUVASTATIN. [Concomitant]
     Active Substance: ROSUVASTATIN

REACTIONS (6)
  - Pulmonary fibrosis [None]
  - Atrial fibrillation [None]
  - Dyspnoea [None]
  - Cough [None]
  - Condition aggravated [None]
  - Lung disorder [None]

NARRATIVE: CASE EVENT DATE: 20200831
